FAERS Safety Report 7030557-6 (Version None)
Quarter: 2010Q4

REPORT INFORMATION
  Report Type: 
  Country: None (occurrence: None)
  Receive Date: 20101006
  Receipt Date: 20100924
  Transmission Date: 20110411
  Serious: Yes (Other)
  Sender: FDA-Public Use
  Company Number: DE-ROCHE-728739

PATIENT
  Sex: Female
  Weight: 53 kg

DRUGS (4)
  1. BONIVA [Suspect]
     Indication: OSTEOPOROSIS
     Dosage: APPLICATION ON 16 SEP 2010
     Route: 042
     Dates: start: 20100916, end: 20100916
  2. COLCHICUM-DISPERT [Concomitant]
     Dosage: INTAKE DAILY
     Dates: start: 19930101
  3. PHENPROGAMMA [Concomitant]
     Dosage: INTAKE DAILY
     Dates: start: 19930101
  4. VIGANTOLETTEN [Concomitant]
     Indication: OSTEOPOROSIS
     Dosage: INTAKE DAILY
     Dates: start: 19930101

REACTIONS (2)
  - PARAESTHESIA [None]
  - VISUAL IMPAIRMENT [None]
